FAERS Safety Report 21858334 (Version 2)
Quarter: 2023Q1

REPORT INFORMATION
  Report Type: Spontaneous
  Country: US (occurrence: US)
  Receive Date: 20230113
  Receipt Date: 20230117
  Transmission Date: 20230417
  Serious: Yes (Death, Hospitalization)
  Sender: FDA-Public Use
  Company Number: US-JNJFOC-20230114999

PATIENT
  Age: 63 Year
  Sex: Male

DRUGS (1)
  1. TYLENOL [Suspect]
     Active Substance: ACETAMINOPHEN
     Indication: Headache
     Dosage: USED IT A FEW TIMES IN A DAY, AND GIRLFRIEND SAID PATIENT USED TOO MUCH OF IT
     Route: 065
     Dates: start: 20220101

REACTIONS (5)
  - Liver injury [Fatal]
  - Illness [Fatal]
  - Muscle spasms [Fatal]
  - Diarrhoea [Fatal]
  - Overdose [Fatal]

NARRATIVE: CASE EVENT DATE: 20220101
